FAERS Safety Report 7568144-3 (Version None)
Quarter: 2011Q2

REPORT INFORMATION
  Report Type: 
  Country: None (occurrence: None)
  Receive Date: 20110616
  Receipt Date: 20110607
  Transmission Date: 20111010
  Serious: Yes (Other)
  Sender: FDA-Public Use
  Company Number: 2011SP026344

PATIENT
  Age: 49 Year
  Sex: Male

DRUGS (11)
  1. ACETAMINOPHEN [Suspect]
     Indication: INTERVERTEBRAL DISC PROTRUSION
     Dosage: 1 GM, Q6H, PO
     Route: 048
     Dates: start: 20110309, end: 20110328
  2. DEXAMETHASONE [Suspect]
     Indication: INTERVERTEBRAL DISC PROTRUSION
     Dosage: 1 MG, TID; 4 MG, TID
     Dates: start: 20110324
  3. DEXAMETHASONE [Suspect]
     Indication: INTERVERTEBRAL DISC PROTRUSION
     Dosage: 1 MG, TID; 4 MG, TID
     Dates: start: 20110315, end: 20110323
  4. IBUPROFEN [Suspect]
     Indication: INTERVERTEBRAL DISC PROTRUSION
     Dosage: 600 MG Q8H, PO
     Route: 048
     Dates: start: 20110309, end: 20110310
  5. RHAMNUS FRANGULA [Concomitant]
  6. ENOXAPARIN SODIUM [Concomitant]
  7. LYRICA [Concomitant]
  8. REMERON [Suspect]
     Indication: POST-TRAUMATIC STRESS DISORDER
     Dosage: 15 MG, QD, PO
     Route: 048
     Dates: start: 20110321, end: 20110328
  9. REMERON [Suspect]
     Indication: AFFECTIVE DISORDER
     Dosage: 15 MG, QD, PO
     Route: 048
     Dates: start: 20110321, end: 20110328
  10. NEXIUM [Suspect]
     Indication: INTERVERTEBRAL DISC PROTRUSION
     Dosage: 40 MG, QD, PO
     Route: 048
     Dates: start: 20110309, end: 20110328
  11. TEMGESIC [Concomitant]

REACTIONS (1)
  - HEPATOCELLULAR INJURY [None]
